FAERS Safety Report 26101002 (Version 1)
Quarter: 2025Q4

REPORT INFORMATION
  Report Type: Spontaneous
  Country: EU (occurrence: EU)
  Receive Date: 20251128
  Receipt Date: 20251128
  Transmission Date: 20260117
  Serious: Yes (Other)
  Sender: AUROBINDO
  Company Number: EU-AEMPS-1776689

PATIENT
  Age: 62 Year
  Sex: Female
  Weight: 59 kg

DRUGS (4)
  1. AZITHROMYCIN [Suspect]
     Active Substance: AZITHROMYCIN
     Indication: Asthma
     Dosage: 250 MILLIGRAM, ONCE A DAY
     Dates: start: 20251013
  2. FOSTER [Suspect]
     Active Substance: BECLOMETHASONE\FORMOTEROL
     Indication: Bronchitis
     Dosage: 1 DOSAGE FORM, TWO TIMES A DAY
     Dates: start: 20251009
  3. FOSTER [Suspect]
     Active Substance: BECLOMETHASONE\FORMOTEROL
     Indication: Asthma
     Dosage: 2 DOSAGE FORM, TWO TIMES A DAY
     Dates: start: 20251009
  4. EUTIROX  75 microgramos COMPRIMIDOS, 100 comprimidos [Concomitant]
     Indication: Autoimmune thyroiditis
     Dosage: UNK
     Route: 065

REACTIONS (4)
  - Tooth discolouration [Not Recovered/Not Resolved]
  - Toothache [Not Recovered/Not Resolved]
  - Tooth loss [Not Recovered/Not Resolved]
  - Gingival pain [Not Recovered/Not Resolved]

NARRATIVE: CASE EVENT DATE: 20251101
